FAERS Safety Report 4727721-5 (Version None)
Quarter: 2005Q3

REPORT INFORMATION
  Report Type: 
  Country: None (occurrence: None)
  Receive Date: 20050727
  Receipt Date: 20050718
  Transmission Date: 20060218
  Serious: Yes (Other)
  Sender: FDA-Public Use
  Company Number: 2005-06-0849

PATIENT
  Age: 30 Year
  Sex: Female

DRUGS (2)
  1. CLARITIN [Suspect]
     Indication: RHINITIS ALLERGIC
     Dosage: 10 MG ORAL
     Route: 048
     Dates: start: 20050603, end: 20050603
  2. CONTRACEPTIVE NOS [Concomitant]

REACTIONS (3)
  - HEPATIC NECROSIS [None]
  - HEPATIC PAIN [None]
  - PRURITUS GENERALISED [None]
